FAERS Safety Report 5735478-4 (Version None)
Quarter: 2008Q2

REPORT INFORMATION
  Report Type: 
  Country: None (occurrence: None)
  Receive Date: 20080512
  Receipt Date: 20080508
  Transmission Date: 20081010
  Serious: Yes (Hospitalization)
  Sender: FDA-Public Use
  Company Number: HQWYE044119MAR07

PATIENT
  Sex: Female
  Weight: 57.2 kg

DRUGS (4)
  1. SIROLIMUS [Suspect]
     Indication: PROPHYLAXIS AGAINST TRANSPLANT REJECTION
     Route: 048
     Dates: start: 20050217, end: 20070315
  2. BACTRIM [Concomitant]
     Dosage: 1/2 TABLET ON M/TH/SAT
     Route: 048
  3. PHENOXYMETHYLPENICILLIN [Concomitant]
     Route: 048
  4. SIMVASTATIN [Concomitant]
     Route: 048

REACTIONS (1)
  - PERICARDIAL EFFUSION [None]
